FAERS Safety Report 8550315-0 (Version None)
Quarter: 2012Q3

REPORT INFORMATION
  Report Type: 
  Country: None (occurrence: None)
  Receive Date: 20120718
  Receipt Date: 20120703
  Transmission Date: 20120928
  Serious: Yes (Death, Other)
  Sender: FDA-Public Use
  Company Number: 2012SGN00169

PATIENT
  Sex: Male

DRUGS (1)
  1. ADCETRIS [Suspect]
     Indication: HODGKIN'S DISEASE

REACTIONS (6)
  - DISEASE PROGRESSION [None]
  - ABASIA [None]
  - NEUROPATHY PERIPHERAL [None]
  - GRAFT VERSUS HOST DISEASE [None]
  - HODGKIN'S DISEASE [None]
  - DIARRHOEA [None]
